FAERS Safety Report 5887024-2 (Version None)
Quarter: 2008Q3

REPORT INFORMATION
  Report Type: 
  Country: None (occurrence: None)
  Receive Date: 20080917
  Receipt Date: 20080902
  Transmission Date: 20090109
  Serious: Yes (Hospitalization)
  Sender: FDA-Public Use
  Company Number: US-GENENTECH-267866

PATIENT
  Sex: Female

DRUGS (3)
  1. BEVACIZUMAB [Suspect]
     Indication: BREAST CANCER
     Dosage: 10 MG/KG, DAYS 2+16
     Route: 042
     Dates: start: 20071127
  2. VORINOSTAT [Suspect]
     Indication: BREAST CANCER
     Dosage: 300 MG, UNK
     Route: 048
     Dates: start: 20071127
  3. TAXOL [Suspect]
     Indication: BREAST CANCER
     Dosage: 90 MG/M2, UNK
     Route: 042
     Dates: start: 20071127

REACTIONS (3)
  - CHEST PAIN [None]
  - DYSPNOEA [None]
  - HYPERGLYCAEMIA [None]
